FAERS Safety Report 17839699 (Version 2)
Quarter: 2020Q2

REPORT INFORMATION
  Report Type: Spontaneous
  Country: JP (occurrence: JP)
  Receive Date: 20200529
  Receipt Date: 20200611
  Transmission Date: 20200714
  Serious: Yes (Other)
  Sender: FDA-Public Use
  Company Number: JP-ASTRAZENECA-2020SE51218

PATIENT
  Age: 63 Year
  Sex: Female
  Weight: 55.4 kg

DRUGS (4)
  1. FORXIGA [Suspect]
     Active Substance: DAPAGLIFLOZIN
     Indication: TYPE 2 DIABETES MELLITUS
     Route: 048
     Dates: start: 20200207, end: 20200325
  2. CANDESARTAN. [Concomitant]
     Active Substance: CANDESARTAN
     Indication: HYPERTENSION
     Route: 048
     Dates: start: 20121226
  3. ROSUVASTATIN OD [Concomitant]
     Indication: DYSLIPIDAEMIA
     Route: 048
     Dates: start: 20130125
  4. NESINA [Concomitant]
     Active Substance: ALOGLIPTIN BENZOATE
     Indication: TYPE 2 DIABETES MELLITUS
     Dosage: MORNING, FOR 30 DAYS
     Route: 048
     Dates: start: 20121226

REACTIONS (4)
  - Musculoskeletal stiffness [Unknown]
  - Physical deconditioning [Unknown]
  - Decreased appetite [Recovered/Resolved]
  - Blood pressure increased [Unknown]

NARRATIVE: CASE EVENT DATE: 20200209
